FAERS Safety Report 7200651-5 (Version None)
Quarter: 2010Q4

REPORT INFORMATION
  Report Type: 
  Country: None (occurrence: None)
  Receive Date: 20101215
  Receipt Date: 20101130
  Transmission Date: 20110411
  Serious: Yes (Hospitalization, Disabling, Other)
  Sender: FDA-Public Use
  Company Number: ACO_20658_2010

PATIENT
  Age: 54 Year
  Sex: Female
  Weight: 113.4 kg

DRUGS (2)
  1. AMPYRA [Suspect]
     Indication: GAIT DISTURBANCE
     Dosage: BID, ORAL
     Route: 048
     Dates: start: 20100701, end: 20100801
  2. AVONEX [Suspect]
     Indication: MULTIPLE SCLEROSIS
     Dosage: 30 UG, WEEKLY, INTRAMUSCULAR
     Route: 030
     Dates: start: 20010716, end: 20100905

REACTIONS (6)
  - ASTHENIA [None]
  - FALL [None]
  - MULTIPLE SCLEROSIS RELAPSE [None]
  - PARALYSIS [None]
  - URINARY TRACT INFECTION [None]
  - WHEELCHAIR USER [None]
